FAERS Safety Report 4938608-7 (Version None)
Quarter: 2006Q1

REPORT INFORMATION
  Report Type: 
  Country: None (occurrence: None)
  Receive Date: 20060306
  Receipt Date: 20060220
  Transmission Date: 20060701
  Serious: Yes (Hospitalization)
  Sender: FDA-Public Use
  Company Number: US200602004124

PATIENT
  Age: 35 Year
  Sex: Female
  Weight: 117.9 kg

DRUGS (4)
  1. PROZAC [Suspect]
     Indication: DEPRESSION
     Dosage: 60 MG, DAILY (1/D), ORAL
     Route: 048
     Dates: start: 19820101
  2. CYMBALTA [Suspect]
     Indication: DEPRESSION
     Dosage: ORAL
     Route: 048
     Dates: start: 20041114, end: 20041201
  3. ZYPREXA [Suspect]
     Indication: THINKING ABNORMAL
     Dosage: ORAL
     Route: 048
     Dates: start: 20050701
  4. SEROQUEL [Concomitant]

REACTIONS (5)
  - DRUG INEFFECTIVE [None]
  - EATING DISORDER [None]
  - PHARMACEUTICAL PRODUCT COMPLAINT [None]
  - SUICIDE ATTEMPT [None]
  - WEIGHT INCREASED [None]
